FAERS Safety Report 20073818 (Version 1)
Quarter: 2021Q4

REPORT INFORMATION
  Report Type: Spontaneous
  Country: US (occurrence: US)
  Receive Date: 20211116
  Receipt Date: 20211116
  Transmission Date: 20220303
  Serious: No
  Sender: FDA-Public Use
  Company Number: US-ALLERGAN-2108721US

PATIENT
  Age: 77 Year
  Sex: Female
  Weight: 53.07 kg

DRUGS (1)
  1. ALPHAGAN P [Suspect]
     Active Substance: BRIMONIDINE TARTRATE
     Indication: Glaucoma
     Dosage: UNK, BID
     Route: 047
     Dates: start: 20210219, end: 20210226

REACTIONS (4)
  - Accidental exposure to product [Unknown]
  - Poor quality product administered [Unknown]
  - Product use complaint [Unknown]
  - Product delivery mechanism issue [Unknown]

NARRATIVE: CASE EVENT DATE: 20210219
